FAERS Safety Report 18711461 (Version 4)
Quarter: 2021Q1

REPORT INFORMATION
  Report Type: Spontaneous
  Country: AT (occurrence: AT)
  Receive Date: 20210107
  Receipt Date: 20210217
  Transmission Date: 20210419
  Serious: Yes (Other)
  Sender: FDA-Public Use
  Company Number: AT-ROCHE-2744230

PATIENT
  Age: 77 Year
  Sex: Male

DRUGS (7)
  1. XEFO [Concomitant]
     Active Substance: LORNOXICAM
     Indication: PAIN
  2. PASPERTIN [Concomitant]
     Route: 042
  3. CAPECITABINE. [Suspect]
     Active Substance: CAPECITABINE
     Dosage: 825 MG/M2 KOF, RADIOCHEMOTHERAPY WITH CAPECITABINE 2X PER DAY ON RADIOTHERAPY DAYS EQUATES TO 2X1500
     Route: 048
     Dates: start: 20201111, end: 20201113
  4. BANEOCIN [Concomitant]
     Dosage: 2X PER DAY AT THE GLANS AREA FOR 10 DAYS
  5. CAPECITABINE. [Suspect]
     Active Substance: CAPECITABINE
     Indication: CHEMOTHERAPY
     Dosage: 825 MG/M2 KOF, RADIOCHEMOTHERAPY WITH CAPECITABINE 2X PER DAY ON RADIOTHERAPY DAYS
     Route: 048
     Dates: start: 20201007, end: 20201030
  6. MITOMYCIN C [Suspect]
     Active Substance: MITOMYCIN
     Indication: CHEMOTHERAPY
     Dosage: 10 MG/M2 KOF, RADIOCHEMOTHERAPY WITH MITOMYCIN C IN 2 CYCLES
     Route: 065
     Dates: start: 20201007, end: 20201113
  7. DUTASTERIDE/TAMSULOSIN [Suspect]
     Active Substance: DUTASTERIDE\TAMSULOSIN HYDROCHLORIDE
     Indication: BENIGN PROSTATIC HYPERPLASIA
     Route: 048
     Dates: start: 202004

REACTIONS (7)
  - Leukopenia [Recovered/Resolved]
  - Dyschezia [Recovered/Resolved]
  - Nocturia [Recovering/Resolving]
  - Therapeutic product effect incomplete [Unknown]
  - Thrombocytopenia [Recovered/Resolved]
  - Defaecation urgency [Recovered/Resolved]
  - Micturition urgency [Recovering/Resolving]
